FAERS Safety Report 5243184-8 (Version None)
Quarter: 2007Q1

REPORT INFORMATION
  Report Type: 
  Country: None (occurrence: None)
  Receive Date: 20070215
  Receipt Date: 20070201
  Transmission Date: 20070707
  Serious: Yes (Hospitalization)
  Sender: FDA-Public Use
  Company Number: B0457786A

PATIENT
  Age: 71 Year
  Sex: Male

DRUGS (4)
  1. WELLBUTRIN [Suspect]
     Dosage: 300 MG / UNKNOWN / UNKNOWN
  2. CLOZAPINE [Suspect]
     Dosage: 25 MG / UNKNOWN / UNKNOWN
  3. VALPROATE SODIUM [Concomitant]
  4. BENZHEXOL [Concomitant]

REACTIONS (1)
  - NEUROLEPTIC MALIGNANT SYNDROME [None]
